FAERS Safety Report 6673238-0 (Version None)
Quarter: 2010Q2

REPORT INFORMATION
  Report Type: 
  Country: None (occurrence: None)
  Receive Date: 20100408
  Receipt Date: 20100330
  Transmission Date: 20101027
  Serious: Yes (Death, Hospitalization)
  Sender: FDA-Public Use
  Company Number: FR-MPIJNJ-2009-02242

PATIENT

DRUGS (16)
  1. VELCADE [Suspect]
     Indication: MULTIPLE MYELOMA
     Dosage: 2.47 MG, UNK
     Route: 042
     Dates: start: 20081110, end: 20090122
  2. DOXORUBICIN HCL [Concomitant]
     Indication: MULTIPLE MYELOMA
     Dosage: 57 MG, UNK
     Route: 042
     Dates: start: 20081110, end: 20090122
  3. DEXAMETHASONE [Concomitant]
     Indication: MULTIPLE MYELOMA
     Dosage: 20 MG, UNK
     Route: 048
     Dates: start: 20081110, end: 20090122
  4. ACETYLSALICYLIC ACID [Concomitant]
  5. TADALAFIL [Concomitant]
  6. SPASFON [Concomitant]
     Dates: start: 20081117
  7. TRAMADOL HCL [Concomitant]
     Dates: start: 20081117
  8. ERYTHROPOIETIN HUMAN [Concomitant]
     Route: 058
     Dates: start: 20081124
  9. AUGMENTIN '125' [Concomitant]
     Dates: start: 20081219, end: 20081228
  10. LEVOFLOXACIN [Concomitant]
     Dates: start: 20081219, end: 20081228
  11. LEVOFLOXACIN [Concomitant]
     Route: 048
     Dates: start: 20090119, end: 20090126
  12. HEPARIN [Concomitant]
     Route: 042
     Dates: start: 20081219
  13. POTASSIUM [Concomitant]
     Dosage: UNK, UNK
     Route: 048
     Dates: start: 20081226, end: 20090122
  14. SOLU-MEDROL [Concomitant]
     Dates: start: 20090119
  15. ATROVENT [Concomitant]
     Dates: start: 20090119
  16. AMOXICILLIN [Concomitant]
     Route: 048
     Dates: start: 20090119, end: 20090126

REACTIONS (2)
  - CLAVICLE FRACTURE [None]
  - GENERAL PHYSICAL HEALTH DETERIORATION [None]
